FAERS Safety Report 7238730-9 (Version None)
Quarter: 2011Q1

REPORT INFORMATION
  Report Type: 
  Country: None (occurrence: None)
  Receive Date: 20110119
  Receipt Date: 20110119
  Transmission Date: 20110831
  Serious: Yes (Hospitalization)
  Sender: FDA-Public Use
  Company Number: None

PATIENT
  Sex: Female
  Weight: 38.4 kg

DRUGS (21)
  1. ATIVAN [Concomitant]
  2. VERSED [Concomitant]
  3. DAUNORUBICIN [Suspect]
     Dosage: 402 MG
  4. ETOPOSIDE [Suspect]
     Dosage: 2325 MG
  5. EPINEPHRINE [Concomitant]
  6. MILRINONE [Concomitant]
  7. MITOXANTRONE HYDROCHLORIDE [Suspect]
     Dosage: 60 MG
  8. OCTEOLIDE [Concomitant]
  9. DOBUTAMINE HCL [Concomitant]
  10. INSULIN [Concomitant]
  11. MORPHINE [Concomitant]
  12. AMICAN [Concomitant]
  13. HEPARIN [Concomitant]
  14. INSULIN [Concomitant]
  15. SODIUM BICARB [Concomitant]
  16. CYTARABINE [Suspect]
     Dosage: 28468 MG
  17. CALCIUM CHLORIDE [Concomitant]
  18. LASIX [Concomitant]
  19. FENTANYL [Concomitant]
  20. POTASSIUM [Concomitant]
  21. VASOPRESSIN [Concomitant]

REACTIONS (23)
  - BLOOD TRIGLYCERIDES INCREASED [None]
  - CARDIOGENIC SHOCK [None]
  - MACROPHAGES INCREASED [None]
  - ABDOMINAL PAIN LOWER [None]
  - CAECITIS [None]
  - DISEASE RECURRENCE [None]
  - ENTEROCOCCAL INFECTION [None]
  - HYPOTENSION [None]
  - CARDIOMYOPATHY [None]
  - CONTINUOUS HAEMODIAFILTRATION [None]
  - SERUM FERRITIN INCREASED [None]
  - PYREXIA [None]
  - ESCHERICHIA TEST POSITIVE [None]
  - DIARRHOEA [None]
  - RESPIRATORY DISTRESS [None]
  - SUBDURAL HAEMORRHAGE [None]
  - CYTOMEGALOVIRUS VIRAEMIA [None]
  - FIBROSIS [None]
  - HISTIOCYTOSIS HAEMATOPHAGIC [None]
  - NECROSIS [None]
  - NEUTROPENIA [None]
  - SKIN LESION [None]
  - HAEMATOCHEZIA [None]
